FAERS Safety Report 21457047 (Version 1)
Quarter: 2022Q4

REPORT INFORMATION
  Report Type: Report from Study
  Country: CN (occurrence: CN)
  Receive Date: 20221014
  Receipt Date: 20221014
  Transmission Date: 20230113
  Serious: Yes (Other)
  Sender: FDA-Public Use
  Company Number: CN-SA-2022SA416239

PATIENT

DRUGS (4)
  1. DUPILUMAB [Suspect]
     Active Substance: DUPILUMAB
     Indication: Pemphigoid
     Dosage: 600 MG (INITIAL DOSE)
     Route: 058
  2. DUPILUMAB [Suspect]
     Active Substance: DUPILUMAB
     Dosage: 300 MG, QOW (TOTAL OF 8 INJECTIONS)
     Route: 058
  3. METHYLPREDNISOLONE [Concomitant]
     Active Substance: METHYLPREDNISOLONE
     Indication: Pemphigoid
     Dosage: {0.4 MG/KG/DAY
  4. HALOMETASONE [Concomitant]
     Active Substance: HALOMETASONE
     Indication: Pemphigoid
     Dosage: UNK UNK, BID

REACTIONS (2)
  - Pulmonary embolism [Unknown]
  - Off label use [Unknown]
